FAERS Safety Report 16883868 (Version 1)
Quarter: 2019Q4

REPORT INFORMATION
  Report Type: Spontaneous
  Country: DE (occurrence: DE)
  Receive Date: 20191004
  Receipt Date: 20191004
  Transmission Date: 20200122
  Serious: Yes (Congenital Anomaly, Other)
  Sender: FDA-Public Use
  Company Number: DE-PFIZER INC-2019424775

PATIENT
  Sex: Male
  Weight: 4 kg

DRUGS (9)
  1. SPIRIVA RESPIMAT [Concomitant]
     Active Substance: TIOTROPIUM BROMIDE
     Dosage: 2.5 UG, DAILY ( IF REQUIRED)
     Route: 064
     Dates: start: 20180519, end: 20190222
  2. KETANEST [KETAMINE HYDROCHLORIDE] [Concomitant]
     Active Substance: KETAMINE HYDROCHLORIDE
     Indication: GENERAL ANAESTHESIA
     Dosage: UNK (ONCE AROUND CONCEPTION OR THE WEEK BEFORE CONCEPTION)
     Route: 064
  3. HYDROMORPHONE [Suspect]
     Active Substance: HYDROMORPHONE
     Indication: COMPLEX REGIONAL PAIN SYNDROME
     Dosage: 20 MG, DAILY (20 [MG/D (BIS 2) ])
     Route: 064
     Dates: start: 20180512, end: 20181119
  4. FOLIC ACID. [Concomitant]
     Active Substance: FOLIC ACID
     Indication: PROPHYLAXIS OF NEURAL TUBE DEFECT
     Dosage: UNK
     Route: 064
  5. QUETIAPINE. [Suspect]
     Active Substance: QUETIAPINE
     Indication: COMPLEX REGIONAL PAIN SYNDROME
     Dosage: 50 MG, 1X/DAY
     Route: 064
     Dates: start: 20180512, end: 20190222
  6. VAXIGRIPTETRA [Concomitant]
     Active Substance: INFLUENZA VIRUS VACCINE QUADRIVALENT TYPE A+B
     Indication: IMMUNISATION
     Dosage: UNK
     Route: 064
     Dates: start: 20181017, end: 20181017
  7. VENLAFAXINE HCL [Suspect]
     Active Substance: VENLAFAXINE HYDROCHLORIDE
     Indication: COMPLEX REGIONAL PAIN SYNDROME
     Dosage: 75 MG, 1X/DAY
     Route: 064
     Dates: start: 20180512, end: 20190222
  8. DUORESP SPIROMAX [Concomitant]
     Active Substance: BUDESONIDE\FORMOTEROL
     Dosage: 4.5 [?G/D (9-0-9) ] / 160 [?G/D (320-0-320) ]
     Route: 064
     Dates: start: 20180519, end: 20190222
  9. PROPOFOL. [Concomitant]
     Active Substance: PROPOFOL
     Indication: GENERAL ANAESTHESIA
     Dosage: ONCE AROUND CONCEPTION OR THE WEEK BEFORE CONCEPTION
     Route: 064

REACTIONS (4)
  - Foetal exposure during pregnancy [Unknown]
  - Congenital megaureter [Unknown]
  - Kidney duplex [Unknown]
  - Congenital hydronephrosis [Unknown]
